FAERS Safety Report 8883305 (Version 3)
Quarter: 2013Q3

REPORT INFORMATION
  Report Type: Spontaneous
  Country: US (occurrence: US)
  Receive Date: 20121102
  Receipt Date: 20130927
  Transmission Date: 20140515
  Serious: No
  Sender: FDA-Public Use
  Company Number: US-ASTRAZENECA-2012SE82802

PATIENT
  Age: 66 Year
  Sex: Male

DRUGS (7)
  1. SEROQUEL [Suspect]
     Indication: BIPOLAR DISORDER
     Route: 048
  2. SEROQUEL [Suspect]
     Indication: ANXIETY
     Route: 048
  3. SEROQUEL [Suspect]
     Indication: BIPOLAR DISORDER
     Dosage: GENERIC
     Route: 065
  4. SEROQUEL [Suspect]
     Indication: ANXIETY
     Dosage: GENERIC
     Route: 065
  5. CITALOPRAM [Concomitant]
  6. CLONAZEPAM [Concomitant]
  7. NEXIUM [Concomitant]

REACTIONS (8)
  - Genital hypoaesthesia [Unknown]
  - Painful erection [Unknown]
  - Anxiety [Unknown]
  - Nervousness [Unknown]
  - Spontaneous penile erection [Unknown]
  - Genital pain [Unknown]
  - Heart rate increased [Unknown]
  - Palpitations [Unknown]
